FAERS Safety Report 5881077-3 (Version None)
Quarter: 2008Q3

REPORT INFORMATION
  Report Type: 
  Country: None (occurrence: None)
  Receive Date: 20080912
  Receipt Date: 20080611
  Transmission Date: 20090109
  Serious: No
  Sender: FDA-Public Use
  Company Number: US-ABBOTT-08P-163-0458196-00

PATIENT
  Sex: Female

DRUGS (1)
  1. HUMIRA [Suspect]
     Indication: DRUG USE FOR UNKNOWN INDICATION
     Dates: start: 20080301

REACTIONS (6)
  - DIARRHOEA [None]
  - INFECTION [None]
  - INFLAMMATION [None]
  - NASOPHARYNGITIS [None]
  - PAIN [None]
  - POLYMENORRHOEA [None]
